FAERS Safety Report 13890994 (Version 3)
Quarter: 2017Q4

REPORT INFORMATION
  Report Type: Report from Study
  Country: None (occurrence: CA)
  Receive Date: 20170822
  Receipt Date: 20171113
  Transmission Date: 20180320
  Serious: Yes (Other)
  Sender: FDA-Public Use
  Company Number: CA-ABBVIE-17K-028-2069816-00

PATIENT
  Age: 46 Year
  Sex: Male

DRUGS (2)
  1. HUMIRA [Suspect]
     Active Substance: ADALIMUMAB
     Route: 058
     Dates: start: 20171108
  2. HUMIRA [Suspect]
     Active Substance: ADALIMUMAB
     Indication: CROHN^S DISEASE
     Route: 058
     Dates: start: 20160722, end: 20171108

REACTIONS (6)
  - Crohn^s disease [Recovering/Resolving]
  - Frustration tolerance decreased [Not Recovered/Not Resolved]
  - Large intestinal haemorrhage [Recovering/Resolving]
  - Arthralgia [Not Recovered/Not Resolved]
  - Haematochezia [Unknown]
  - Mucous stools [Not Recovered/Not Resolved]

NARRATIVE: CASE EVENT DATE: 2017
